FAERS Safety Report 21023655 (Version 2)
Quarter: 2022Q3

REPORT INFORMATION
  Report Type: Spontaneous
  Country: US (occurrence: US)
  Receive Date: 20220629
  Receipt Date: 20220701
  Transmission Date: 20221027
  Serious: No
  Sender: FDA-Public Use
  Company Number: US-PFIZER INC-202200902688

PATIENT
  Age: 65 Year
  Sex: Female

DRUGS (1)
  1. PAXLOVID [Suspect]
     Active Substance: NIRMATRELVIR\RITONAVIR
     Indication: COVID-19 treatment
     Dosage: [PF-07321332 300 MG]/[RITONAVIR 100 MG], TWICE A DAY (MORNING AND AT NIGHT)
     Dates: start: 20220621, end: 20220625

REACTIONS (2)
  - Malaise [Unknown]
  - Weight decreased [Unknown]
